FAERS Safety Report 8228386-0 (Version None)
Quarter: 2012Q1

REPORT INFORMATION
  Report Type: 
  Country: None (occurrence: None)
  Receive Date: 20120322
  Receipt Date: 20110831
  Transmission Date: 20120608
  Serious: Yes (Other)
  Sender: FDA-Public Use
  Company Number: US-BRISTOL-MYERS SQUIBB COMPANY-15965205

PATIENT
  Age: 56 Year
  Sex: Male

DRUGS (6)
  1. ERBITUX [Suspect]
     Indication: COLORECTAL CANCER
     Dosage: ON 28OCT08,800MG 4NOV08-21JUL09,500MMG WEEKLY 01SEP09-24JUL09,500MG 11FEB10-17FEB11,500MG
     Route: 042
     Dates: start: 20081028, end: 20110217
  2. XELODA [Suspect]
     Dates: start: 20100211, end: 20110214
  3. LEUCOVORIN CALCIUM [Suspect]
     Dates: start: 20080901, end: 20090915
  4. OXALIPLATIN [Suspect]
     Dosage: DOSES ON 17FEB11,10MAR11,24MAR11-25APR11
     Dates: start: 20110217, end: 20110425
  5. IRINOTECAN HYDROCHLORIDE [Suspect]
     Dosage: 01SEP08-15SEP09 29SEP09-24NOV09 27FEB11,10MAR11 24MAR11-25APR11
     Dates: start: 20080901, end: 20110415
  6. FLUOROURACIL [Suspect]
     Dates: start: 20080901, end: 20090915

REACTIONS (2)
  - NEOPLASM MALIGNANT [None]
  - HYPOMAGNESAEMIA [None]
